FAERS Safety Report 4924624-8 (Version None)
Quarter: 2006Q1

REPORT INFORMATION
  Report Type: 
  Country: None (occurrence: None)
  Receive Date: 20060222
  Receipt Date: 20060209
  Transmission Date: 20060701
  Serious: Yes (Disabling, Other)
  Sender: FDA-Public Use
  Company Number: 2005084750

PATIENT
  Age: 50 Year
  Sex: Female
  Weight: 101 kg

DRUGS (4)
  1. SILDENAFIL CITRATE [Suspect]
     Indication: PULMONARY HYPERTENSION
     Dosage: 150 MG (50 MG, 3 IN 1 D), ORAL
     Route: 048
     Dates: start: 20040527
  2. WARFARIN SODIUM [Concomitant]
  3. SPIRONOLACTONE [Concomitant]
  4. DILTIAZEM [Concomitant]

REACTIONS (4)
  - DEAFNESS NEUROSENSORY [None]
  - DEAFNESS UNILATERAL [None]
  - EAR PAIN [None]
  - TINNITUS [None]
